FAERS Safety Report 7710545-4 (Version None)
Quarter: 2011Q3

REPORT INFORMATION
  Report Type: 
  Country: None (occurrence: None)
  Receive Date: 20110825
  Receipt Date: 20110818
  Transmission Date: 20111222
  Serious: Yes (Hospitalization, Other)
  Sender: FDA-Public Use
  Company Number: US-PFIZER INC-2007036645

PATIENT
  Sex: Male

DRUGS (7)
  1. NEURONTIN [Suspect]
     Indication: PAIN IN EXTREMITY
  2. NEURONTIN [Suspect]
     Indication: MIGRAINE
  3. CELEXA [Concomitant]
     Dosage: UNK
  4. NEURONTIN [Suspect]
     Indication: BACK PAIN
  5. DOXEPIN [Concomitant]
     Dosage: UNK
  6. NEURONTIN [Suspect]
     Indication: ANXIETY
  7. NEURONTIN [Suspect]
     Indication: BIPOLAR DISORDER
     Dosage: UNK

REACTIONS (7)
  - MICTURITION DISORDER [None]
  - AMNESIA [None]
  - WEIGHT INCREASED [None]
  - THINKING ABNORMAL [None]
  - DRUG INEFFECTIVE FOR UNAPPROVED INDICATION [None]
  - SUICIDAL IDEATION [None]
  - DEPRESSION [None]
